FAERS Safety Report 5616055-2 (Version None)
Quarter: 2008Q1

REPORT INFORMATION
  Report Type: 
  Country: None (occurrence: None)
  Receive Date: 20080206
  Receipt Date: 20080125
  Transmission Date: 20080703
  Serious: Yes (Hospitalization)
  Sender: FDA-Public Use
  Company Number: FR-PFIZER INC-2008008453

PATIENT
  Sex: Male

DRUGS (8)
  1. LYRICA [Suspect]
     Indication: SCIATICA
     Route: 048
     Dates: start: 20071110, end: 20071116
  2. MYOLASTAN [Suspect]
     Route: 048
  3. ACUPAN [Suspect]
     Dosage: TEXT:EVERY DAY, TOTAL DAILY DOSE:4 DF
     Route: 042
  4. ATHYMIL [Suspect]
     Route: 048
  5. INIPOMP [Suspect]
     Route: 048
  6. MORPHINE SULFATE [Concomitant]
  7. MORPHINE SULFATE [Concomitant]
  8. CLONAZEPAM [Concomitant]

REACTIONS (1)
  - CYTOLYTIC HEPATITIS [None]
